FAERS Safety Report 4490469-9 (Version None)
Quarter: 2004Q4

REPORT INFORMATION
  Report Type: 
  Country: None (occurrence: None)
  Receive Date: 20041028
  Receipt Date: 20041021
  Transmission Date: 20050328
  Serious: Yes (Life-Threatening)
  Sender: FDA-Public Use
  Company Number: 2004240102FR

PATIENT
  Age: 37 Year
  Sex: Female

DRUGS (1)
  1. TRELSTAR DEPOT [Suspect]
     Indication: OVARIAN DISORDER
     Dosage: 3 MG, ONE INJECTION, INTRAMUSCULAR
     Route: 030
     Dates: start: 20031210, end: 20031210

REACTIONS (4)
  - ANAPHYLACTIC SHOCK [None]
  - ANGIONEUROTIC OEDEMA [None]
  - BLOOD PRESSURE DECREASED [None]
  - URTICARIA [None]
